FAERS Safety Report 10742577 (Version 1)
Quarter: 2015Q1

REPORT INFORMATION
  Report Type: Spontaneous
  Country: US (occurrence: US)
  Receive Date: 20150127
  Receipt Date: 20150127
  Transmission Date: 20150721
  Serious: No
  Sender: FDA-Public Use
  Company Number: US-BAUSCH-SYM-2014-15042

PATIENT
  Age: 44 Year
  Sex: Female

DRUGS (1)
  1. DIHYDROERGOTAMINE MESYLATE NASAL SPRAY [Suspect]
     Active Substance: DIHYDROERGOTAMINE MESYLATE
     Indication: HEADACHE
     Route: 045

REACTIONS (1)
  - Drug ineffective [Not Recovered/Not Resolved]
